FAERS Safety Report 11355278 (Version 1)
Quarter: 2015Q3

REPORT INFORMATION
  Report Type: Spontaneous
  Country: SI (occurrence: SI)
  Receive Date: 20150807
  Receipt Date: 20150807
  Transmission Date: 20151125
  Serious: Yes (Life-Threatening, Hospitalization)
  Sender: FDA-Public Use
  Company Number: SI-ASTRAZENECA-2015SE74605

PATIENT
  Age: 71 Year
  Sex: Female
  Weight: 100 kg

DRUGS (6)
  1. HEPARIN [Concomitant]
     Active Substance: HEPARIN SODIUM
  2. CAPTOPRIL. [Concomitant]
     Active Substance: CAPTOPRIL
     Route: 060
     Dates: start: 20150711, end: 20150711
  3. ATORIS [Concomitant]
     Active Substance: ATORVASTATIN CALCIUM
     Route: 048
     Dates: start: 20150711
  4. BRILIQUE [Suspect]
     Active Substance: TICAGRELOR
     Indication: ACUTE MYOCARDIAL INFARCTION
     Route: 048
     Dates: start: 20150711
  5. ASPIRIN. [Concomitant]
     Active Substance: ASPIRIN
     Indication: ACUTE MYOCARDIAL INFARCTION
     Route: 048
     Dates: start: 20150711
  6. METOCHLOPRAMIDE [Concomitant]
     Active Substance: METOCLOPRAMIDE HYDROCHLORIDE

REACTIONS (1)
  - Vascular stent thrombosis [Unknown]

NARRATIVE: CASE EVENT DATE: 201507
